FAERS Safety Report 26027898 (Version 3)
Quarter: 2025Q4

REPORT INFORMATION
  Report Type: Report from Study
  Country: US (occurrence: US)
  Receive Date: 20251111
  Receipt Date: 20251215
  Transmission Date: 20260118
  Serious: Yes (Hospitalization)
  Sender: ACADIA PHARMACEUTICALS
  Company Number: US-ACADIA PHARMACEUTICALS INC.-ACA-2025-TRF-011738

PATIENT
  Sex: Female

DRUGS (1)
  1. DAYBUE [Suspect]
     Active Substance: TROFINETIDE
     Indication: Rett syndrome
     Dosage: 20 MILLILITER, BID
     Route: 048

REACTIONS (11)
  - Diarrhoea [Not Recovered/Not Resolved]
  - Hyperventilation [Recovered/Resolved]
  - Lethargy [Not Recovered/Not Resolved]
  - Renal disorder [Not Recovered/Not Resolved]
  - Blood bicarbonate decreased [Unknown]
  - Regressive behaviour [Not Recovered/Not Resolved]
  - Bruxism [Not Recovered/Not Resolved]
  - Hypokinesia [Not Recovered/Not Resolved]
  - Aphasia [Not Recovered/Not Resolved]
  - Trichotillomania [Not Recovered/Not Resolved]
  - Underdose [Not Recovered/Not Resolved]
